FAERS Safety Report 6005059-6 (Version None)
Quarter: 2008Q4

REPORT INFORMATION
  Report Type: 
  Country: None (occurrence: None)
  Receive Date: 20081215
  Receipt Date: 20081201
  Transmission Date: 20090506
  Serious: Yes (Hospitalization, Other)
  Sender: FDA-Public Use
  Company Number: GXKR2008US11451

PATIENT
  Age: 71 Year
  Sex: Female

DRUGS (3)
  1. DIPHENHYDRAMINE (NGX) (DIPHENHYDRAMINE) UNKNOWN [Suspect]
     Indication: DRUG ERUPTION
     Dosage: INTRAVENOUS
     Route: 042
  2. LINEZOLID [Suspect]
     Indication: ENTEROCOCCAL INFECTION
  3. DAPTOMYCIN (DAPTOMYCIN) [Concomitant]

REACTIONS (8)
  - AUTONOMIC NERVOUS SYSTEM IMBALANCE [None]
  - DELIRIUM [None]
  - DRUG ERUPTION [None]
  - DRUG INTERACTION [None]
  - HALLUCINATIONS, MIXED [None]
  - PARANOIA [None]
  - PYREXIA [None]
  - SEROTONIN SYNDROME [None]
